FAERS Safety Report 18763586 (Version 2)
Quarter: 2022Q2

REPORT INFORMATION
  Report Type: Spontaneous
  Country: US (occurrence: US)
  Receive Date: 20210120
  Receipt Date: 20220413
  Transmission Date: 20220721
  Serious: No
  Sender: FDA-Public Use
  Company Number: US-PFIZER INC-2020420096

PATIENT
  Age: 61 Year
  Sex: Male

DRUGS (2)
  1. INLYTA [Suspect]
     Active Substance: AXITINIB
     Indication: Renal cancer metastatic
     Dosage: 5 MG
  2. BAVENCIO [Concomitant]
     Active Substance: AVELUMAB
     Dosage: UNK

REACTIONS (2)
  - Off label use [Unknown]
  - Blood pressure abnormal [Unknown]
